FAERS Safety Report 9164718 (Version 1)
Quarter: 2013Q1

REPORT INFORMATION
  Report Type: Spontaneous
  Country: DE (occurrence: None)
  Receive Date: 20130226
  Receipt Date: 20130226
  Transmission Date: 20140127
  Serious: Yes (Other)
  Sender: FDA-Public Use
  Company Number: MIN-00909

PATIENT
  Age: 15 Year
  Sex: Male

DRUGS (1)
  1. MINOCYCLINE [Suspect]
     Indication: ACNE

REACTIONS (5)
  - Acute hepatic failure [None]
  - Renal failure acute [None]
  - Tubulointerstitial nephritis [None]
  - Rash [None]
  - Eosinophilia [None]
